FAERS Safety Report 6106640-6 (Version None)
Quarter: 2009Q1

REPORT INFORMATION
  Report Type: 
  Country: None (occurrence: None)
  Receive Date: 20090302
  Receipt Date: 20090225
  Transmission Date: 20090719
  Serious: Yes (Hospitalization)
  Sender: FDA-Public Use
  Company Number: GXKR2009DE02378

PATIENT
  Age: 77 Year
  Sex: Female
  Weight: 88 kg

DRUGS (6)
  1. ACETYLSALICYLIC ACID (NGX)(ACETYLSALICYLIC ACID) TABLET, 100MG [Suspect]
     Indication: AMAUROSIS
     Dosage: 100 MG, QD, ORAL
     Route: 048
     Dates: end: 20080804
  2. REWODINA ^ARZNEIMITTELWERK^ (DICLOFENAC SODIUM) 50MG [Suspect]
     Indication: PAIN
     Dosage: 50 MG, BID, ORAL
     Route: 048
     Dates: start: 20080731, end: 20080731
  3. ALLOPURINOL [Concomitant]
  4. HYZAAR [Concomitant]
  5. STRONTIUM RANELATE (STRONTIUM RANELATE) [Concomitant]
  6. VITAMIN D [Concomitant]

REACTIONS (1)
  - DIVERTICULUM INTESTINAL HAEMORRHAGIC [None]
